FAERS Safety Report 16243181 (Version 2)
Quarter: 2019Q2

REPORT INFORMATION
  Report Type: Spontaneous
  Country: US (occurrence: US)
  Receive Date: 20190426
  Receipt Date: 20190508
  Transmission Date: 20190711
  Serious: Yes (Hospitalization, Other)
  Sender: FDA-Public Use
  Company Number: US-AMGEN-USASP2019063889

PATIENT
  Age: 51 Year
  Sex: Female

DRUGS (11)
  1. ASA [Concomitant]
     Active Substance: ASPIRIN
     Dosage: 81 MILLIGRAM, QD
  2. REPATHA [Suspect]
     Active Substance: EVOLOCUMAB
     Indication: HYPERCHOLESTEROLAEMIA
     Dosage: 140 MILLIGRAM, Q2WK
     Route: 065
     Dates: start: 20190306
  3. L25 [Concomitant]
     Dosage: UNK MILLIGRAM, BID
  4. NTG [Concomitant]
     Active Substance: NITROGLYCERIN
     Dosage: UNK
  5. REPATHA [Suspect]
     Active Substance: EVOLOCUMAB
     Indication: TYPE IIA HYPERLIPIDAEMIA
  6. LIBRIUM [CHLORDIAZEPOXIDE] [Concomitant]
     Indication: ALCOHOL WITHDRAWAL SYNDROME
     Dosage: 10 MILLIGRAM, BID
  7. FOLIC ACID. [Concomitant]
     Active Substance: FOLIC ACID
     Dosage: UNK
  8. RESVERATROL [Concomitant]
     Active Substance: DIETARY SUPPLEMENT\RESVERATROL
     Dosage: UNK UNK, QD
  9. TOPROL XL [Concomitant]
     Active Substance: METOPROLOL SUCCINATE
     Dosage: UNK
  10. MULTIPLE VITAMINS [Concomitant]
     Active Substance: VITAMINS
     Dosage: UNK
  11. THIAMIN [THIAMINE] [Concomitant]
     Indication: ALCOHOL ABUSE
     Dosage: 100 MILLIGRAM, QD

REACTIONS (6)
  - Feeling abnormal [Unknown]
  - Acute psychosis [Unknown]
  - Traumatic intracranial haemorrhage [Unknown]
  - Influenza like illness [Unknown]
  - Fall [Unknown]
  - Myalgia [Unknown]

NARRATIVE: CASE EVENT DATE: 20190306
